FAERS Safety Report 21881507 (Version 1)
Quarter: 2023Q1

REPORT INFORMATION
  Report Type: Spontaneous
  Country: CA (occurrence: CA)
  Receive Date: 20230119
  Receipt Date: 20230119
  Transmission Date: 20230418
  Serious: Yes (Other)
  Sender: FDA-Public Use
  Company Number: CA-TEVA-2023-CA-2845623

PATIENT
  Age: 55 Year
  Sex: Female

DRUGS (10)
  1. CANDESARTAN [Suspect]
     Active Substance: CANDESARTAN
     Indication: Migraine
     Route: 048
  2. CANDESARTAN [Suspect]
     Active Substance: CANDESARTAN
     Indication: Blood pressure measurement
     Route: 048
  3. FLUOXETINE HYDROCHLORIDE [Suspect]
     Active Substance: FLUOXETINE HYDROCHLORIDE
     Indication: Migraine
     Route: 065
  4. PANTOPRAZOLE [Suspect]
     Active Substance: PANTOPRAZOLE
     Indication: Migraine
     Dosage: 80 MILLIGRAM DAILY;
     Route: 065
  5. TOPIRAMATE [Suspect]
     Active Substance: TOPIRAMATE
     Indication: Migraine
     Route: 065
  6. ERENUMAB-AOOE [Suspect]
     Active Substance: ERENUMAB-AOOE
     Indication: Migraine
     Route: 058
  7. FERROUS FUMARATE [Concomitant]
     Active Substance: FERROUS FUMARATE
     Indication: Product used for unknown indication
  8. MODAFINIL [Concomitant]
     Active Substance: MODAFINIL
     Indication: Product used for unknown indication
     Dosage: 200 MILLIGRAM DAILY;
  9. NAPROXEN [Concomitant]
     Active Substance: NAPROXEN
     Indication: Product used for unknown indication
  10. OSTO-D2 [Concomitant]
     Indication: Product used for unknown indication

REACTIONS (14)
  - Dysstasia [Unknown]
  - Eye pain [Unknown]
  - Headache [Unknown]
  - Hypertension [Unknown]
  - Hypoaesthesia oral [Unknown]
  - Nausea [Unknown]
  - Pain of skin [Unknown]
  - Photophobia [Unknown]
  - Swelling face [Unknown]
  - Heart rate abnormal [Unknown]
  - Blood pressure measurement [Unknown]
  - Drug intolerance [Unknown]
  - Off label use [Unknown]
  - Therapeutic product effect decreased [Unknown]
